FAERS Safety Report 6692660-X (Version None)
Quarter: 2010Q2

REPORT INFORMATION
  Report Type: 
  Country: None (occurrence: None)
  Receive Date: 20100422
  Receipt Date: 20100419
  Transmission Date: 20101027
  Serious: Yes (Hospitalization, Other)
  Sender: FDA-Public Use
  Company Number: SE-PFIZER INC-2010048799

PATIENT
  Sex: Male

DRUGS (4)
  1. TOVIAZ [Suspect]
     Dosage: UNK
     Dates: start: 20090325
  2. INSULIN [Concomitant]
     Dosage: UNK
  3. VITAMIN D [Concomitant]
     Dosage: UNK
  4. TROMBYL [Concomitant]
     Dosage: UNK

REACTIONS (5)
  - DRY MOUTH [None]
  - LOSS OF CONSCIOUSNESS [None]
  - PAIN IN EXTREMITY [None]
  - POISONING [None]
  - TOOTH DISORDER [None]
